FAERS Safety Report 9820264 (Version 1)
Quarter: 2013Q4

REPORT INFORMATION
  Report Type: Spontaneous
  Country: US (occurrence: None)
  Receive Date: 20131224
  Receipt Date: 20131224
  Transmission Date: 20140711
  Serious: No
  Sender: FDA-Public Use
  Company Number: PHEH2013US022408

PATIENT
  Sex: 0

DRUGS (1)
  1. GILENYA [Suspect]

REACTIONS (2)
  - Aphthous stomatitis [None]
  - Chest pain [None]
